FAERS Safety Report 9420674 (Version 1)
Quarter: 2013Q3

REPORT INFORMATION
  Report Type: Report from Study
  Country: BR (occurrence: BR)
  Receive Date: 20130725
  Receipt Date: 20130725
  Transmission Date: 20140515
  Serious: Yes (Hospitalization, Other)
  Sender: FDA-Public Use
  Company Number: PHHY2013BR079331

PATIENT
  Sex: Female
  Weight: 47 kg

DRUGS (11)
  1. DIOVAN HCT [Suspect]
     Indication: HYPERTENSION
     Dosage: 1 DF (160/25MG), QD (IN THE MORNING)
     Route: 048
  2. MODURETIC [Suspect]
     Indication: HYPERTENSION
     Dosage: 1 DF (25MG), DAILY
     Route: 048
  3. PREDNISONE [Concomitant]
     Indication: RENAL TRANSPLANT
     Dosage: 1 DF (5MG), DAILY
     Route: 048
  4. PROGRAF [Concomitant]
     Indication: RENAL TRANSPLANT
     Dosage: 6 DF (1MG), DAILY
     Route: 048
  5. MYFORTIC [Concomitant]
     Indication: RENAL TRANSPLANT
     Dosage: 1 DF (360MG), DAILY
     Route: 048
  6. PANTOPRAZOLE [Concomitant]
     Indication: GASTRITIS PROPHYLAXIS
     Dosage: 1 DF (40MG), DAILY
     Route: 048
  7. AMIODARONE [Concomitant]
     Indication: ARRHYTHMIA
     Dosage: 1 DF (200MG), DAILIY
     Route: 048
  8. SOMALGIN [Concomitant]
     Indication: ANTICOAGULANT THERAPY
     Dosage: 1 DF (200MG), DAILY
     Route: 048
  9. CITALOPRAM [Concomitant]
     Indication: DEPRESSION
     Dosage: 1 DF (20MG), DAILY
     Route: 048
  10. CITONEURIN                         /00499701/ [Concomitant]
     Indication: VITAMIN E DEFICIENCY
     Dosage: 1 DF (5000MG), DAILY
     Route: 048
  11. CITONEURIN                         /00499701/ [Concomitant]
     Indication: PAIN

REACTIONS (5)
  - Endocarditis [Recovered/Resolved]
  - Pyrexia [Recovered/Resolved]
  - Blood pressure decreased [Recovered/Resolved]
  - Diabetes mellitus [Recovered/Resolved]
  - Blood cholesterol increased [Recovered/Resolved]
